FAERS Safety Report 4391930-8 (Version None)
Quarter: 2004Q3

REPORT INFORMATION
  Report Type: 
  Country: None (occurrence: None)
  Receive Date: 20040701
  Receipt Date: 20040513
  Transmission Date: 20050211
  Serious: Yes (Other)
  Sender: FDA-Public Use
  Company Number: US_011074826

PATIENT
  Age: 36 Year
  Sex: Female

DRUGS (1)
  1. PHENOBARBITAL TAB [Suspect]
     Indication: LENNOX-GASTAUT SYNDROME
     Dosage: 250 MG/DAY
     Dates: start: 19650401

REACTIONS (4)
  - CONDITION AGGRAVATED [None]
  - CONVULSION [None]
  - FLUID RETENTION [None]
  - OEDEMA PERIPHERAL [None]
